FAERS Safety Report 8809921 (Version 1)
Quarter: 2012Q4

REPORT INFORMATION
  Report Type: 
  Country: ES (occurrence: ES)
  Receive Date: 20120926
  Receipt Date: 20120926
  Transmission Date: 20130627
  Serious: Yes (Death, Other)
  Sender: FDA-Public Use
  Company Number: ES-CELGENEUS-144-50794-12092261

PATIENT
  Age: 84 Year
  Sex: Female
  Weight: 52 kg

DRUGS (8)
  1. VIDAZA [Suspect]
     Indication: ACUTE MYELOID LEUKEMIA
     Dosage: 100 Milligram
     Route: 058
     Dates: start: 20090331
  2. VIDAZA [Suspect]
     Dosage: 100 Milligram
     Route: 058
  3. VIDAZA [Suspect]
     Dosage: 100 Milligram
     Route: 058
     Dates: start: 20090914
  4. VIDAZA [Suspect]
     Dosage: 100 Milligram
     Route: 058
     Dates: end: 201009
  5. HYDREA [Suspect]
     Indication: THROMBOCYTOSIS
     Route: 065
  6. ASPIRINE [Concomitant]
     Indication: THROMBOCYTOSIS
     Dosage: 100 Milligram
     Route: 065
  7. PEGFILGRASTIM [Concomitant]
     Indication: DRUG USE FOR UNKNOWN INDICATION
     Route: 058
  8. POSACONAZOLE [Concomitant]
     Indication: PROPHYLAXIS
     Dosage: 600 Milligram
     Route: 058

REACTIONS (13)
  - Craniocerebral injury [Unknown]
  - Subdural haematoma [Unknown]
  - Death [Fatal]
  - Acute myeloid leukaemia [Unknown]
  - Thrombocytopenia [Unknown]
  - Neutropenia [Unknown]
  - Purpura [Unknown]
  - Herpes zoster [Unknown]
  - Asthenia [Unknown]
  - Anaemia [Unknown]
  - Leukaemia recurrent [Unknown]
  - Upper respiratory tract infection [Unknown]
  - Escherichia urinary tract infection [Unknown]
